FAERS Safety Report 14929392 (Version 1)
Quarter: 2018Q2

REPORT INFORMATION
  Report Type: Spontaneous
  Country: JP (occurrence: JP)
  Receive Date: 20180523
  Receipt Date: 20180523
  Transmission Date: 20180711
  Serious: Yes (Other)
  Sender: FDA-Public Use
  Company Number: JP-MYLANLABS-2018M1034108

PATIENT
  Age: 18 Year
  Sex: Female

DRUGS (1)
  1. HYDROCORTISONE. [Suspect]
     Active Substance: HYDROCORTISONE
     Indication: ADRENAL INSUFFICIENCY
     Dosage: 10 MG AND 5 MG IN THE MORNING AND EVENING, RESPECTIVELY.
     Route: 048

REACTIONS (2)
  - Condition aggravated [Unknown]
  - Adrenal insufficiency [Unknown]
